FAERS Safety Report 7381315-4 (Version None)
Quarter: 2011Q1

REPORT INFORMATION
  Report Type: 
  Country: None (occurrence: None)
  Receive Date: 20110321
  Receipt Date: 20110309
  Transmission Date: 20110831
  Serious: Yes (Hospitalization)
  Sender: FDA-Public Use
  Company Number: 2011051365

PATIENT
  Age: 92 Year
  Sex: Female

DRUGS (3)
  1. INNOHEP [Suspect]
     Dates: start: 20101213, end: 20110104
  2. FRAGMIN [Suspect]
     Indication: PULMONARY EMBOLISM
     Dates: start: 20110104, end: 20110110
  3. OXAZEPAM [Concomitant]

REACTIONS (2)
  - PRURITUS [None]
  - DERMATITIS [None]
